FAERS Safety Report 23242524 (Version 4)
Quarter: 2024Q2

REPORT INFORMATION
  Report Type: Report from Study
  Country: US (occurrence: US)
  Receive Date: 20231129
  Receipt Date: 20240611
  Transmission Date: 20240716
  Serious: Yes (Hospitalization, Other)
  Sender: FDA-Public Use
  Company Number: US-ABBVIE-5516917

PATIENT
  Sex: Male
  Weight: 107 kg

DRUGS (8)
  1. SKYRIZI [Suspect]
     Active Substance: RISANKIZUMAB-RZAA
     Indication: Crohn^s disease
     Dosage: TIME INTERVAL: TOTAL: WEEK 12?FORM STRENGTH 360 MILLIGRAMS/2.4M
     Route: 058
     Dates: start: 20230613, end: 20230613
  2. SKYRIZI [Suspect]
     Active Substance: RISANKIZUMAB-RZAA
     Dosage: FORM STRENGTH 360 MILLIGRAMS/2.4M?LAST ADMIN DATE 2023
     Route: 058
     Dates: start: 20230808, end: 20230808
  3. SKYRIZI [Suspect]
     Active Substance: RISANKIZUMAB-RZAA
     Dosage: FORM STRENGTH 360 MILLIGRAMS/2.4M
     Route: 058
     Dates: start: 20231120
  4. SKYRIZI [Suspect]
     Active Substance: RISANKIZUMAB-RZAA
     Indication: Crohn^s disease
     Dosage: TIME INTERVAL: TOTAL: WEEK 4?600MG
     Route: 042
     Dates: start: 202304, end: 202304
  5. SKYRIZI [Suspect]
     Active Substance: RISANKIZUMAB-RZAA
     Indication: Crohn^s disease
     Dosage: TIME INTERVAL: TOTAL: WEEK 8?600MG
     Route: 042
     Dates: start: 20230516, end: 20230516
  6. SKYRIZI [Suspect]
     Active Substance: RISANKIZUMAB-RZAA
     Indication: Crohn^s disease
     Dosage: TIME INTERVAL: TOTAL: WEEK 0?600MG
     Route: 058
     Dates: start: 20230321, end: 20230321
  7. CIPROFLOXACIN [Suspect]
     Active Substance: CIPROFLOXACIN
     Indication: Product used for unknown indication
     Dosage: IN HOSPITAL
     Route: 042
  8. CIPROFLOXACIN [Suspect]
     Active Substance: CIPROFLOXACIN
     Indication: Product used for unknown indication
     Dosage: AT HOME
     Route: 048

REACTIONS (21)
  - Kidney infection [Recovered/Resolved]
  - Weight decreased [Unknown]
  - Chills [Unknown]
  - Pyrexia [Unknown]
  - Back pain [Unknown]
  - Muscle tightness [Not Recovered/Not Resolved]
  - Insomnia [Unknown]
  - Tunnel vision [Recovered/Resolved]
  - Pain in extremity [Unknown]
  - Drug ineffective [Unknown]
  - Groin pain [Recovering/Resolving]
  - Cystitis [Unknown]
  - Vision blurred [Unknown]
  - Hernia [Unknown]
  - Arthralgia [Not Recovered/Not Resolved]
  - Urine flow decreased [Unknown]
  - Arthralgia [Recovering/Resolving]
  - Nephrolithiasis [Unknown]
  - Arthralgia [Unknown]
  - Weight increased [Unknown]
  - Urethral pain [Unknown]

NARRATIVE: CASE EVENT DATE: 20230101
